FAERS Safety Report 9030012 (Version 2)
Quarter: 2013Q4

REPORT INFORMATION
  Report Type: Spontaneous
  Country: US (occurrence: US)
  Receive Date: 20130125
  Receipt Date: 20131227
  Transmission Date: 20140711
  Serious: No
  Sender: FDA-Public Use
  Company Number: US-BIOGENIDEC-2013BI005339

PATIENT
  Sex: Male

DRUGS (2)
  1. TYSABRI [Suspect]
     Indication: MULTIPLE SCLEROSIS
     Route: 042
     Dates: start: 20080128
  2. AVONEX [Concomitant]
     Route: 030

REACTIONS (3)
  - Muscular weakness [Not Recovered/Not Resolved]
  - Nystagmus [Not Recovered/Not Resolved]
  - Visual acuity reduced [Not Recovered/Not Resolved]
